FAERS Safety Report 18129003 (Version 2)
Quarter: 2020Q3

REPORT INFORMATION
  Report Type: Report from Study
  Country: JP (occurrence: JP)
  Receive Date: 20200810
  Receipt Date: 20200817
  Transmission Date: 20201103
  Serious: Yes (Hospitalization)
  Sender: FDA-Public Use
  Company Number: JP-ROCHE-2632126

PATIENT
  Age: 82 Year
  Sex: Male
  Weight: 59.2 kg

DRUGS (21)
  1. ALIMTA [Suspect]
     Active Substance: PEMETREXED DISODIUM
     Route: 041
     Dates: start: 20200629
  2. ATEZOLIZUMAB. [Suspect]
     Active Substance: ATEZOLIZUMAB
     Indication: LUNG ADENOCARCINOMA
     Route: 041
     Dates: start: 20200519
  3. CARBOPLATIN. [Suspect]
     Active Substance: CARBOPLATIN
     Dosage: DOSE: AUC4
     Route: 041
     Dates: start: 20200609
  4. BACLOFEN. [Concomitant]
     Active Substance: BACLOFEN
     Indication: HICCUPS
  5. BEVACIZUMAB. [Suspect]
     Active Substance: BEVACIZUMAB
     Indication: LUNG ADENOCARCINOMA
     Route: 042
     Dates: start: 20200519
  6. ALLOPURINOL. [Concomitant]
     Active Substance: ALLOPURINOL
     Indication: HYPERTENSION
     Route: 048
  7. ZOPICLONE [Concomitant]
     Active Substance: ZOPICLONE
     Indication: INSOMNIA
  8. ALIMTA [Suspect]
     Active Substance: PEMETREXED DISODIUM
     Indication: LUNG ADENOCARCINOMA
     Route: 041
     Dates: start: 20200519, end: 20200519
  9. ALIMTA [Suspect]
     Active Substance: PEMETREXED DISODIUM
     Route: 041
     Dates: start: 20200609
  10. CLOBETASOL PROPIONATE. [Concomitant]
     Active Substance: CLOBETASOL PROPIONATE
     Indication: URTICARIA
     Dosage: ONE PAINT
     Route: 061
     Dates: start: 20200609
  11. CARBOPLATIN. [Suspect]
     Active Substance: CARBOPLATIN
     Indication: LUNG ADENOCARCINOMA
     Dosage: DOSE: AUC5
     Route: 041
     Dates: start: 20200519, end: 20200519
  12. DOMPERIDONE [Concomitant]
     Active Substance: DOMPERIDONE
     Indication: NAUSEA
     Route: 048
  13. LOXOPROFEN SODIUM HYDRATE [Concomitant]
     Active Substance: LOXOPROFEN SODIUM DIHYDRATE
     Indication: NECK PAIN
     Route: 048
     Dates: start: 20200609
  14. REBAMIPIDE [Concomitant]
     Active Substance: REBAMIPIDE
     Indication: GASTRITIS PROPHYLAXIS
     Route: 048
     Dates: start: 20200609
  15. DESPA [Concomitant]
     Indication: STOMATITIS
     Route: 048
     Dates: start: 20200529
  16. ALIMTA [Suspect]
     Active Substance: PEMETREXED DISODIUM
     Route: 041
     Dates: start: 20200721
  17. NICORANDIL [Concomitant]
     Active Substance: NICORANDIL
     Indication: HYPERTENSION
     Route: 048
  18. LANSOPRAZOLE. [Concomitant]
     Active Substance: LANSOPRAZOLE
     Indication: GASTRITIS PROPHYLAXIS
     Route: 048
     Dates: start: 20200526
  19. FRESMIN S [Concomitant]
     Active Substance: HYDROXOCOBALAMIN
     Indication: PREMEDICATION
     Route: 042
  20. PITAVASTATIN CALCIUM [Concomitant]
     Active Substance: PITAVASTATIN CALCIUM
     Indication: DYSLIPIDAEMIA
     Route: 048
  21. LEVOCETIRIZINE HYDROCHLORIDE [Concomitant]
     Active Substance: LEVOCETIRIZINE HYDROCHLORIDE
     Indication: URTICARIA
     Route: 048
     Dates: start: 20200609

REACTIONS (2)
  - Supraventricular tachycardia [Recovering/Resolving]
  - Thrombocytopenia [Recovered/Resolved]

NARRATIVE: CASE EVENT DATE: 20200622
